FAERS Safety Report 8926150 (Version 1)
Quarter: 2012Q4

REPORT INFORMATION
  Report Type: 
  Country: US (occurrence: US)
  Receive Date: 20121127
  Receipt Date: 20121127
  Transmission Date: 20130627
  Serious: Yes (Other)
  Sender: FDA-Public Use
  Company Number: US-ACTELION-A-US2007-17859

PATIENT
  Age: 6 Year
  Sex: Male

DRUGS (1)
  1. ZAVESCA [Suspect]
     Indication: TAY-SACHS DISEASE
     Dosage: 100 mg, bid
     Route: 048
     Dates: start: 200702, end: 200709

REACTIONS (1)
  - Convulsion [Recovered/Resolved]
